FAERS Safety Report 5209229-6 (Version None)
Quarter: 2007Q1

REPORT INFORMATION
  Report Type: 
  Country: None (occurrence: None)
  Receive Date: 20070116
  Receipt Date: 20070110
  Transmission Date: 20070707
  Serious: Yes (Disabling, Other)
  Sender: FDA-Public Use
  Company Number: US-PURDUE-USA_2005_0021029

PATIENT
  Age: 27 Year
  Sex: Male

DRUGS (2)
  1. OXYCONTIN [Suspect]
     Indication: DRUG DEPENDENCE
     Dosage: UNK MG, UNK
     Route: 065
  2. PERCOCET [Suspect]
     Indication: DRUG USE FOR UNKNOWN INDICATION

REACTIONS (3)
  - DRUG DEPENDENCE [None]
  - LEGAL PROBLEM [None]
  - SUBSTANCE ABUSE [None]
